FAERS Safety Report 5701253-X (Version None)
Quarter: 2008Q2

REPORT INFORMATION
  Report Type: 
  Country: None (occurrence: None)
  Receive Date: 20080407
  Receipt Date: 20080326
  Transmission Date: 20081010
  Serious: Yes (Hospitalization, Other)
  Sender: FDA-Public Use
  Company Number: 2008US000865

PATIENT
  Age: 56 Year
  Sex: Female

DRUGS (4)
  1. PROGRAF [Suspect]
     Indication: RENAL TRANSPLANT
     Dosage: ORAL
     Route: 048
  2. OMEPRAZOLE [Concomitant]
  3. FOLIC ACID [Concomitant]
  4. MICOPHENOLATE [Concomitant]

REACTIONS (1)
  - BILE DUCT OBSTRUCTION [None]
